FAERS Safety Report 9312433 (Version 2)
Quarter: 2013Q2

REPORT INFORMATION
  Report Type: Spontaneous
  Country: US (occurrence: None)
  Receive Date: 20130507
  Receipt Date: 20130611
  Transmission Date: 20140414
  Serious: Yes (Death)
  Sender: FDA-Public Use
  Company Number: 2013PROUSA02774

PATIENT
  Age: 76 Year
  Sex: Male
  Weight: 54.4 kg

DRUGS (7)
  1. PROVENGE [Suspect]
     Indication: PROSTATE CANCER METASTATIC
     Dosage: 250 ML, SINGLE, INTRAVENOUS
     Route: 042
     Dates: start: 20120802, end: 20120802
  2. BICALUTAMIDE (BICALUTAMIDE) [Concomitant]
  3. TAMSULOSIN HYDROCHLORIDE (TAMSULOSIN HYDROCHLORIDE) [Concomitant]
  4. ASPIRIN (ACETYLSALICYLIC ACID) [Concomitant]
  5. DILTIAZEM (DILTIAZEM HYDROCHLORIDE) [Concomitant]
  6. PRAVASTATIN (PRAVASTATIN SODIUM) [Concomitant]
  7. XGEVA (DENOSUMAB) [Concomitant]

REACTIONS (1)
  - Death [None]
